FAERS Safety Report 10776843 (Version 2)
Quarter: 2015Q3

REPORT INFORMATION
  Report Type: Other
  Country: IT (occurrence: IT)
  Receive Date: 20150209
  Receipt Date: 20150914
  Transmission Date: 20151125
  Serious: Yes (Hospitalization)
  Sender: FDA-Public Use
  Company Number: IT-APOTEX-2015AP006335

PATIENT
  Age: 53 Year
  Sex: Female

DRUGS (6)
  1. LEXOTAN [Suspect]
     Active Substance: BROMAZEPAM
     Indication: PRODUCT USED FOR UNKNOWN INDICATION
     Dosage: 15 ML, SINGLE
     Route: 048
     Dates: start: 20130701, end: 20130701
  2. CIPRALEX [Suspect]
     Active Substance: ESCITALOPRAM OXALATE
     Indication: PRODUCT USED FOR UNKNOWN INDICATION
     Dosage: 280 MG, SINGLE
     Route: 065
     Dates: start: 20130701, end: 20130701
  3. ENANTYUM [Suspect]
     Active Substance: DEXKETOPROFEN TROMETAMOL
     Indication: PRODUCT USED FOR UNKNOWN INDICATION
     Dosage: 250 MG, SINGLE
     Dates: start: 20130701, end: 20130701
  4. NUROFEN [Suspect]
     Active Substance: IBUPROFEN
     Indication: PRODUCT USED FOR UNKNOWN INDICATION
     Route: 065
  5. PAXIL [Suspect]
     Active Substance: PAROXETINE HYDROCHLORIDE
     Indication: PRODUCT USED FOR UNKNOWN INDICATION
     Dosage: 280 MG, DAILY
     Route: 048
     Dates: start: 20130701, end: 20130701
  6. XANAX [Suspect]
     Active Substance: ALPRAZOLAM
     Dosage: 20 ML, SINGLE
     Route: 048
     Dates: start: 20130701, end: 20130701

REACTIONS (2)
  - Psychomotor retardation [Recovered/Resolved]
  - Toxicity to various agents [Recovered/Resolved]

NARRATIVE: CASE EVENT DATE: 20130601
